FAERS Safety Report 8846900 (Version 2)
Quarter: 2012Q4

REPORT INFORMATION
  Report Type: Spontaneous
  Country: US (occurrence: None)
  Receive Date: 20121016
  Receipt Date: 20121023
  Transmission Date: 20130627
  Serious: Yes (Hospitalization)
  Sender: FDA-Public Use
  Company Number: 2012-4478

PATIENT
  Age: 14 Year
  Sex: Male

DRUGS (14)
  1. INCRELEX [Suspect]
     Indication: PRIMARY INSULIN LIKE GROWTH FACTOR-1 DEFICIENCY
     Dosage: 308 mcg/kg (154 ug/kg, 2 in 1 d), subcutaneous
     Route: 058
     Dates: start: 20110818, end: 20120701
  2. INCRELEX [Suspect]
     Indication: PRIMARY INSULIN LIKE GROWTH FACTOR-1 DEFICIENCY
     Dosage: 304 mcg/kg (152 ug/kg, 2 in 1 d), subcutaneous
     Route: 058
     Dates: start: 20110401, end: 20110817
  3. INCRELEX [Suspect]
     Indication: PRIMARY INSULIN LIKE GROWTH FACTOR-1 DEFICIENCY
     Dosage: 256 mcg/kg (128 ug/kg, 2 in 1 d), subcutaneous
     Route: 058
     Dates: start: 20100311, end: 20110331
  4. INCRELEX [Suspect]
     Indication: PRIMARY INSULIN LIKE GROWTH FACTOR-1 DEFICIENCY
     Dosage: 254 mcg/kg (127 ug/kg, 2 in 1 d) subcutaneous
     Route: 058
     Dates: start: 20091030, end: 20100310
  5. INCRELEX [Suspect]
     Indication: PRIMARY INSULIN LIKE GROWTH FACTOR-1 DEFICIENCY
     Dosage: 160 mcg/kg (80 ug/kg, 2 in 1 d), subcutaneous
     Route: 058
     Dates: start: 20090619, end: 20091029
  6. TYLENOL [Concomitant]
  7. ADVIL [Concomitant]
  8. MIRALAX [Concomitant]
  9. MOMETASONE AEPB [Concomitant]
  10. MAXAIR INHALER [Concomitant]
  11. CETIRIZINE (CETIRIZINE) [Concomitant]
  12. OLOPATADINE [Concomitant]
  13. FOLIC ACID [Concomitant]
  14. MULTIVITAMINS [Concomitant]

REACTIONS (4)
  - Graft versus host disease [None]
  - Sickle cell anaemia [None]
  - Overdose [None]
  - Condition aggravated [None]
